FAERS Safety Report 19589164 (Version 1)
Quarter: 2021Q3

REPORT INFORMATION
  Report Type: Spontaneous
  Country: US (occurrence: US)
  Receive Date: 20210721
  Receipt Date: 20210721
  Transmission Date: 20211014
  Serious: Yes (Other)
  Sender: FDA-Public Use
  Company Number: US-PFIZER INC-2021861380

PATIENT

DRUGS (1)
  1. DEPO?ESTRADIOL [Suspect]
     Active Substance: ESTRADIOL CYPIONATE
     Dosage: 1 MG, MONTHLY

REACTIONS (3)
  - Upper limb fracture [Unknown]
  - Visual impairment [Unknown]
  - Glaucoma [Unknown]
